FAERS Safety Report 13042920 (Version 1)
Quarter: 2016Q4

REPORT INFORMATION
  Report Type: Spontaneous
  Country: US (occurrence: US)
  Receive Date: 20161219
  Receipt Date: 20161219
  Transmission Date: 20170207
  Serious: No
  Sender: FDA-Public Use
  Company Number: US-JAZZ-2016-US-022972

PATIENT
  Sex: Female

DRUGS (36)
  1. GAS-X MAX STRENGTH [Concomitant]
  2. FEVERFEW                           /01723001/ [Concomitant]
  3. KRILL OIL [Concomitant]
     Active Substance: DIETARY SUPPLEMENT
  4. NORTRIPTYLINE HCL [Concomitant]
     Active Substance: NORTRIPTYLINE HYDROCHLORIDE
  5. TIZANIDINE HCL [Concomitant]
     Active Substance: TIZANIDINE HYDROCHLORIDE
  6. CULTURELLE [Concomitant]
     Active Substance: LACTOBACILLUS RHAMNOSUS
  7. DEXILANT [Concomitant]
     Active Substance: DEXLANSOPRAZOLE
  8. INDOMETHACIN                       /00003801/ [Concomitant]
     Active Substance: INDOMETHACIN
  9. BIOTIN [Concomitant]
     Active Substance: BIOTIN
  10. FLONASE                            /00908302/ [Concomitant]
     Active Substance: MOMETASONE FUROATE
  11. GABAPENTIN. [Concomitant]
     Active Substance: GABAPENTIN
  12. NYSTATIN AND TRIAMCINOLONE [Concomitant]
     Active Substance: NYSTATIN\TRIAMCINOLONE ACETONIDE
  13. XANAX [Concomitant]
     Active Substance: ALPRAZOLAM
  14. IRON [Concomitant]
     Active Substance: IRON
  15. DIAZEPAM. [Concomitant]
     Active Substance: DIAZEPAM
  16. MAGNESIUM OXIDE. [Concomitant]
     Active Substance: MAGNESIUM OXIDE
  17. NAMENDA [Concomitant]
     Active Substance: MEMANTINE HYDROCHLORIDE
  18. VITAMIN D3 [Concomitant]
     Active Substance: CHOLECALCIFEROL
  19. VITAMIN E                          /00110501/ [Concomitant]
     Active Substance: TOCOPHEROL
  20. MAGNESIUM GLYCINATE [Concomitant]
     Active Substance: MAGNESIUM GLYCINATE
  21. DULOXETINE HCL [Concomitant]
     Active Substance: DULOXETINE HYDROCHLORIDE
  22. FLUNARIZINE [Concomitant]
     Active Substance: FLUNARIZINE
  23. FLUTICASONE PROPIONATE. [Concomitant]
     Active Substance: FLUTICASONE PROPIONATE
  24. MULTIVITAMINS                      /00116001/ [Concomitant]
  25. XYREM [Suspect]
     Active Substance: SODIUM OXYBATE
     Indication: NARCOLEPSY
     Dosage: 2.25 G, BID
     Route: 048
     Dates: start: 201604, end: 201605
  26. XYREM [Suspect]
     Active Substance: SODIUM OXYBATE
     Dosage: DOSE ADJUSTMENTS
     Route: 048
     Dates: start: 201605, end: 201605
  27. DOCUSATE SODIUM. [Concomitant]
     Active Substance: DOCUSATE SODIUM
  28. CETIRIZINE HCL [Concomitant]
     Active Substance: CETIRIZINE HYDROCHLORIDE
  29. NAPROXEN. [Concomitant]
     Active Substance: NAPROXEN
  30. XYREM [Suspect]
     Active Substance: SODIUM OXYBATE
     Dosage: 4.5 G, BID
     Route: 048
     Dates: start: 201605
  31. CLONIDINE HCL [Concomitant]
     Active Substance: CLONIDINE HYDROCHLORIDE
  32. DRONABINOL. [Concomitant]
     Active Substance: DRONABINOL
  33. ISOMETHEPTENE DICHLORAL APAP [Concomitant]
  34. LEVOFLOXACIN. [Concomitant]
     Active Substance: LEVOFLOXACIN
  35. LEVOTHYROXINE. [Concomitant]
     Active Substance: LEVOTHYROXINE
  36. QUETIAPINE FUMARATE. [Concomitant]
     Active Substance: QUETIAPINE FUMARATE

REACTIONS (5)
  - Agitation [Unknown]
  - Anxiety [Unknown]
  - Cold sweat [Unknown]
  - Heart rate increased [Unknown]
  - Migraine [Unknown]

NARRATIVE: CASE EVENT DATE: 2016
